FAERS Safety Report 5347050-9 (Version None)
Quarter: 2007Q2

REPORT INFORMATION
  Report Type: 
  Country: None (occurrence: None)
  Receive Date: 20070604
  Receipt Date: 20070522
  Transmission Date: 20071010
  Serious: Yes (Other)
  Sender: FDA-Public Use
  Company Number: 2007322126

PATIENT
  Age: 8 Year
  Sex: Female
  Weight: 24 kg

DRUGS (3)
  1. BENADRYL ALLERGY (DIPENHYDRAMINE) (DIPHENHYDRAMINE) [Suspect]
     Indication: HYPERSENSITIVITY
     Dosage: 1-2 TABLETS EVERY 6 HOURS, ORAL
     Dates: start: 20070517
  2. ZYRTEC [Concomitant]
  3. ALBUTEROL [Concomitant]

REACTIONS (1)
  - REACTION TO COLOURING [None]
